FAERS Safety Report 8974954 (Version 1)
Quarter: 2012Q4

REPORT INFORMATION
  Report Type: 
  Country: GR (occurrence: GR)
  Receive Date: 20121219
  Receipt Date: 20121219
  Transmission Date: 20130627
  Serious: Yes (Other)
  Sender: FDA-Public Use
  Company Number: PHHY2012GR116254

PATIENT
  Age: 45 Year
  Sex: Female

DRUGS (2)
  1. GILENYA [Suspect]
     Route: 048
  2. MEDROL [Concomitant]
     Dosage: 16 mg, 1/4

REACTIONS (1)
  - Hypoglycaemia [Not Recovered/Not Resolved]
